FAERS Safety Report 11012556 (Version 1)
Quarter: 2015Q2

REPORT INFORMATION
  Report Type: Spontaneous
  Country: US (occurrence: None)
  Receive Date: 20150407
  Receipt Date: 20150407
  Transmission Date: 20150821
  Serious: Yes (Hospitalization, Other)
  Sender: FDA-Public Use
  Company Number: LH201400427

PATIENT
  Age: 27 Year
  Sex: Female

DRUGS (2)
  1. MAKENA [Suspect]
     Active Substance: HYDROXYPROGESTERONE CAPROATE
     Indication: PREMATURE DELIVERY
     Dates: start: 2014, end: 20141007
  2. PRENATAL VITAMINS MINERAL NOS, /01549301/ (ASCORBIC ACID, BIOTIN, MINERALS NOS, NICOTINIC ACID, RETINOL, TOCOPHERAL, VITAMIN B NOS, VITAMIN D NOS) [Concomitant]

REACTIONS (1)
  - Pre-eclampsia [None]

NARRATIVE: CASE EVENT DATE: 20141104
